FAERS Safety Report 15888981 (Version 1)
Quarter: 2019Q1

REPORT INFORMATION
  Report Type: Spontaneous
  Country: US (occurrence: US)
  Receive Date: 20190130
  Receipt Date: 20190130
  Transmission Date: 20190417
  Serious: Yes (Hospitalization, Other)
  Sender: FDA-Public Use
  Company Number: US-ASTRAZENECA-2019SE13572

PATIENT
  Age: 45 Year
  Sex: Female

DRUGS (8)
  1. OLAPARIB. [Suspect]
     Active Substance: OLAPARIB
     Indication: BREAST CANCER METASTATIC
     Route: 048
  2. OLAPARIB. [Suspect]
     Active Substance: OLAPARIB
     Indication: BREAST CANCER METASTATIC
     Route: 048
  3. OMEPRAZOLE. [Concomitant]
     Active Substance: OMEPRAZOLE
     Route: 065
  4. OLAPARIB. [Suspect]
     Active Substance: OLAPARIB
     Indication: BREAST CANCER METASTATIC
     Route: 048
  5. OLAPARIB. [Suspect]
     Active Substance: OLAPARIB
     Indication: BREAST CANCER METASTATIC
     Route: 048
  6. LEVOTHYROXINE. [Concomitant]
     Active Substance: LEVOTHYROXINE
     Route: 065
  7. OLAPARIB. [Suspect]
     Active Substance: OLAPARIB
     Indication: BREAST CANCER METASTATIC
     Route: 048
  8. CHOLECALCIFEROL [Concomitant]
     Active Substance: CHOLECALCIFEROL
     Route: 065

REACTIONS (4)
  - Erythema nodosum [Recovering/Resolving]
  - Off label use [Unknown]
  - Febrile neutropenia [Unknown]
  - Product use in unapproved indication [Unknown]
